FAERS Safety Report 8821823 (Version 1)
Quarter: 2012Q4

REPORT INFORMATION
  Report Type: 
  Country: FR (occurrence: FR)
  Receive Date: 20121003
  Receipt Date: 20121003
  Transmission Date: 20130627
  Serious: Yes (Other)
  Sender: FDA-Public Use
  Company Number: FR-AMGEN-FRASP2012061698

PATIENT
  Age: 37 Year
  Sex: Female

DRUGS (2)
  1. ENBREL [Suspect]
     Indication: RHEUMATOID ARTHRITIS
     Dosage: UNK
     Dates: start: 200707, end: 2008
  2. METHOTREXATE SODIUM [Suspect]
     Indication: RHEUMATOID ARTHRITIS
     Dosage: UNK
     Dates: start: 200707, end: 2008

REACTIONS (1)
  - Abortion spontaneous [Unknown]
